FAERS Safety Report 4393308-X (Version None)
Quarter: 2004Q3

REPORT INFORMATION
  Report Type: 
  Country: None (occurrence: None)
  Receive Date: 20040701
  Receipt Date: 20040610
  Transmission Date: 20050211
  Serious: Yes (Hospitalization)
  Sender: FDA-Public Use
  Company Number: FR_031003071

PATIENT
  Age: 72 Year
  Sex: Female
  Weight: 54 kg

DRUGS (1)
  1. GEMZAR [Suspect]
     Indication: GALLBLADDER CANCER
     Dosage: 1700 MG/1 OTHER
     Route: 050
     Dates: start: 20030331, end: 20030513

REACTIONS (9)
  - ABDOMINAL PAIN UPPER [None]
  - CONSTIPATION [None]
  - CYTOLYTIC HEPATITIS [None]
  - DRUG TOXICITY [None]
  - FAECALOMA [None]
  - LEUKOCYTOSIS [None]
  - NAUSEA [None]
  - PANCREATIC DISORDER [None]
  - VOMITING [None]
